FAERS Safety Report 8823951 (Version 3)
Quarter: 2012Q4

REPORT INFORMATION
  Report Type: 
  Country: DE (occurrence: DE)
  Receive Date: 20121003
  Receipt Date: 20121129
  Transmission Date: 20130627
  Serious: Yes (Hospitalization)
  Sender: FDA-Public Use
  Company Number: DE-PFIZER INC-2012239872

PATIENT
  Age: 80 Year
  Sex: Female
  Weight: 66.5 kg

DRUGS (2)
  1. SUNITINIB MALATE [Suspect]
     Indication: RENAL CANCER METASTATIC
     Dosage: 50 mg, 1x/day followed by a 2-weeks-break
     Dates: start: 20120702, end: 20120913
  2. L-THYROXIN [Concomitant]
     Indication: HYPOTHYROIDISM
     Dosage: UNK
     Route: 048

REACTIONS (5)
  - Gastrointestinal tract adenoma [Recovered/Resolved]
  - General physical health deterioration [Recovered/Resolved]
  - Dehydration [Recovered/Resolved]
  - Gastritis [Recovered/Resolved]
  - Oesophageal candidiasis [Recovered/Resolved]
